FAERS Safety Report 23605489 (Version 2)
Quarter: 2024Q3

REPORT INFORMATION
  Report Type: Spontaneous
  Country: US (occurrence: US)
  Receive Date: 20240307
  Receipt Date: 20240725
  Transmission Date: 20241016
  Serious: Yes (Other)
  Sender: SANOFI AVENTIS
  Company Number: US-SA-SAC20240306000599

PATIENT
  Age: 83 Year
  Sex: Male

DRUGS (6)
  1. DUPIXENT [Suspect]
     Active Substance: DUPILUMAB
     Indication: Dermatitis atopic
     Dosage: 300 MG, QOW
     Route: 058
     Dates: start: 2018
  2. OPDIVO [Concomitant]
     Active Substance: NIVOLUMAB
  3. ROSUVASTATIN [Concomitant]
     Active Substance: ROSUVASTATIN
  4. SOTALOL [Concomitant]
     Active Substance: SOTALOL
  5. TYLENOL [Concomitant]
     Active Substance: ACETAMINOPHEN
  6. ICY HOT (MENTHOL) [Concomitant]
     Active Substance: MENTHOL

REACTIONS (8)
  - Oesophageal carcinoma [Not Recovered/Not Resolved]
  - Decreased appetite [Unknown]
  - Malaise [Unknown]
  - Fatigue [Unknown]
  - Asthenia [Unknown]
  - Decreased interest [Recovering/Resolving]
  - Neck pain [Unknown]
  - Pruritus [Unknown]
